FAERS Safety Report 4339296-3 (Version None)
Quarter: 2004Q2

REPORT INFORMATION
  Report Type: 
  Country: None (occurrence: None)
  Receive Date: 20040412
  Receipt Date: 20040330
  Transmission Date: 20050107
  Serious: Yes (Hospitalization)
  Sender: FDA-Public Use
  Company Number: HQWYE291831MAR04

PATIENT
  Age: 83 Year
  Sex: Male

DRUGS (8)
  1. EFFEXOR XR [Suspect]
     Dosage: 150 MG 1X PER 1 DAY
     Route: 048
     Dates: start: 20030121, end: 20030129
  2. FLUDROCORTISONE ACETATE TAB [Suspect]
  3. METOCLOPRAMIDE [Suspect]
  4. PANTOPRAZOLE (PANTOPRAZOLE) [Suspect]
  5. SEREPAX (OXAZEPAM, UNSPEC) [Suspect]
  6. SOTALOL HCL [Suspect]
  7. TRIMETHOPRIM [Suspect]
  8. WARFARIN SODIUM [Concomitant]

REACTIONS (1)
  - RESPIRATORY ALKALOSIS [None]
